FAERS Safety Report 16799947 (Version 1)
Quarter: 2019Q3

REPORT INFORMATION
  Report Type: Spontaneous
  Country: US (occurrence: US)
  Receive Date: 20190912
  Receipt Date: 20190912
  Transmission Date: 20191005
  Serious: Yes (Other)
  Sender: FDA-Public Use
  Company Number: US-TEVA-2019-US-1105119

PATIENT
  Sex: Female
  Weight: 65 kg

DRUGS (1)
  1. COPAXONE [Suspect]
     Active Substance: GLATIRAMER ACETATE
     Indication: DEMYELINATION
     Route: 065

REACTIONS (3)
  - Vulvar dysplasia [Unknown]
  - Anogenital warts [Unknown]
  - Off label use [Unknown]
